FAERS Safety Report 19248241 (Version 1)
Quarter: 2021Q2

REPORT INFORMATION
  Report Type: Spontaneous
  Country: US (occurrence: US)
  Receive Date: 20210512
  Receipt Date: 20210512
  Transmission Date: 20210717
  Serious: Yes (Death, Hospitalization)
  Sender: FDA-Public Use
  Company Number: US-MYLANLABS-2021M1027680

PATIENT
  Age: 85 Year
  Sex: Female
  Weight: 37.9 kg

DRUGS (1)
  1. LETROZOLE. [Suspect]
     Active Substance: LETROZOLE
     Indication: BREAST CANCER
     Dosage: UNK
     Route: 065

REACTIONS (7)
  - Hypoxia [Unknown]
  - Cachexia [Unknown]
  - Faecaloma [Fatal]
  - Adult failure to thrive [Unknown]
  - Constipation [Fatal]
  - Abdominal distension [Unknown]
  - Confusional state [Unknown]
